FAERS Safety Report 20140526 (Version 1)
Quarter: 2021Q4

REPORT INFORMATION
  Report Type: Spontaneous
  Country: US (occurrence: US)
  Receive Date: 20211202
  Receipt Date: 20211202
  Transmission Date: 20220303
  Serious: No
  Sender: FDA-Public Use
  Company Number: US-ELI_LILLY_AND_COMPANY-US202112000402

PATIENT
  Age: 62 Year
  Sex: Female

DRUGS (2)
  1. TALTZ [Suspect]
     Active Substance: IXEKIZUMAB
     Indication: Dermatitis atopic
     Dosage: UNK UNK, UNKNOWN
     Route: 065
     Dates: start: 20211009
  2. DUPIXENT [Suspect]
     Active Substance: DUPILUMAB
     Indication: Dermatitis atopic
     Dosage: 300 MG, OTHER(EVERY OTHER WEEK)
     Route: 058
     Dates: start: 20211009

REACTIONS (2)
  - Eczema [Unknown]
  - Rash macular [Unknown]

NARRATIVE: CASE EVENT DATE: 20211001
